FAERS Safety Report 10334014 (Version 1)
Quarter: 2014Q3

REPORT INFORMATION
  Report Type: Spontaneous
  Country: US (occurrence: US)
  Receive Date: 20140723
  Receipt Date: 20140723
  Transmission Date: 20150326
  Serious: No
  Sender: FDA-Public Use
  Company Number: US-009507513-1407USA007625

PATIENT
  Age: 16 Year
  Sex: Female
  Weight: 65.31 kg

DRUGS (1)
  1. IMPLANON [Suspect]
     Active Substance: ETONOGESTREL
     Indication: CONTRACEPTION
     Dosage: ONE ROD ONCE
     Route: 059
     Dates: start: 20111111

REACTIONS (4)
  - Unintended pregnancy [Unknown]
  - Amenorrhoea [Unknown]
  - Vaginal haemorrhage [Unknown]
  - Human chorionic gonadotropin abnormal [Unknown]

NARRATIVE: CASE EVENT DATE: 20111111
